FAERS Safety Report 10055061 (Version 1)
Quarter: 2014Q2

REPORT INFORMATION
  Report Type: Spontaneous
  Country: US (occurrence: US)
  Receive Date: 20140402
  Receipt Date: 20140402
  Transmission Date: 20141212
  Serious: No
  Sender: FDA-Public Use
  Company Number: US-SA-2014SA001065

PATIENT
  Sex: Female

DRUGS (4)
  1. AUBAGIO [Suspect]
     Indication: MULTIPLE SCLEROSIS
     Route: 048
     Dates: start: 201303
  2. DESMOPRESSIN ACETATE [Concomitant]
     Dosage: STRENGTH: 0.2 MG
  3. VYVANSE [Concomitant]
     Dosage: STRENGTH: 20 MG
  4. VESICARE [Concomitant]
     Dosage: STRENGTH: 10 MG

REACTIONS (1)
  - Alopecia [Unknown]
